FAERS Safety Report 9373156 (Version 2)
Quarter: 2013Q3

REPORT INFORMATION
  Report Type: Report from Study
  Country: JP (occurrence: JP)
  Receive Date: 20130627
  Receipt Date: 20130716
  Transmission Date: 20140515
  Serious: Yes (Other)
  Sender: FDA-Public Use
  Company Number: JP-CELGENEUS-087-50794-13062977

PATIENT
  Age: 62 Year
  Sex: Male

DRUGS (4)
  1. VIDAZA [Suspect]
     Indication: MYELODYSPLASTIC SYNDROME
     Dosage: 112 MILLIGRAM
     Route: 041
     Dates: start: 20121001
  2. VIDAZA [Suspect]
     Dosage: 112 MILLIGRAM
     Route: 041
  3. VIDAZA [Suspect]
     Dosage: 112 MILLIGRAM
     Route: 041
  4. CYLOCIDE [Concomitant]
     Indication: PRODUCT USED FOR UNKNOWN INDICATION
     Route: 065

REACTIONS (1)
  - Hepatitis B [Recovering/Resolving]
